FAERS Safety Report 6552076-3 (Version None)
Quarter: 2010Q1

REPORT INFORMATION
  Report Type: 
  Country: None (occurrence: None)
  Receive Date: 20100120
  Receipt Date: 20100106
  Transmission Date: 20100710
  Serious: Yes (Hospitalization, Other)
  Sender: FDA-Public Use
  Company Number: 1-21248988

PATIENT
  Age: 44 Year
  Sex: Female

DRUGS (3)
  1. CARBAMAZEPINE [Suspect]
     Indication: AFFECTIVE DISORDER
     Dosage: 600 MG, ORAL
     Route: 048
  2. QUETIAPINE [Suspect]
     Dosage: TITRATED TO 700 MG/DAY, ORAL
     Route: 048
  3. RISPERIDONE [Concomitant]

REACTIONS (6)
  - AGITATION [None]
  - CONDITION AGGRAVATED [None]
  - DRUG LEVEL BELOW THERAPEUTIC [None]
  - INCREASED APPETITE [None]
  - NERVOUSNESS [None]
  - PSYCHOTIC DISORDER [None]
